FAERS Safety Report 13205740 (Version 1)
Quarter: 2017Q1

REPORT INFORMATION
  Report Type: Spontaneous
  Country: US (occurrence: US)
  Receive Date: 20170208
  Receipt Date: 20170208
  Transmission Date: 20170428
  Serious: Yes (Other)
  Sender: FDA-Public Use
  Company Number: None

PATIENT
  Age: 58 Year
  Sex: Female
  Weight: 94 kg

DRUGS (7)
  1. METFORMIN HCL ER TABS 500MG [Suspect]
     Active Substance: METFORMIN HYDROCHLORIDE
     Indication: DIABETES MELLITUS
     Dosage: ?          QUANTITY:1 TABLET(S);?
     Route: 048
     Dates: start: 20170111, end: 20170206
  2. ENTERIC COATED ASPIRIN [Concomitant]
     Active Substance: ASPIRIN
  3. DILANTIN [Concomitant]
     Active Substance: PHENYTOIN
  4. MINERAL [Concomitant]
  5. COUMADIN [Concomitant]
     Active Substance: WARFARIN SODIUM
  6. MULTIVITAMIN [Concomitant]
     Active Substance: VITAMINS
  7. QUESTRAN [Concomitant]
     Active Substance: CHOLESTYRAMINE

REACTIONS (6)
  - Blood glucose increased [None]
  - Nausea [None]
  - Blood ketone body [None]
  - Malaise [None]
  - Dyspnoea [None]
  - Fatigue [None]

NARRATIVE: CASE EVENT DATE: 20170207
